FAERS Safety Report 6896699-0 (Version None)
Quarter: 2010Q3

REPORT INFORMATION
  Report Type: 
  Country: None (occurrence: None)
  Receive Date: 20100802
  Receipt Date: 20070126
  Transmission Date: 20110219
  Serious: No
  Sender: FDA-Public Use
  Company Number: US-PFIZER INC-2007007742

PATIENT
  Sex: Female
  Weight: 72.57 kg

DRUGS (7)
  1. LYRICA [Suspect]
     Indication: NEURALGIA
     Dosage: 2 CAPSULES OF 100MG
     Dates: start: 20060701
  2. ZANAFLEX [Concomitant]
  3. NIFEDIPINE [Concomitant]
  4. KLONOPIN [Concomitant]
  5. IMURAN [Concomitant]
  6. BACLOFEN [Concomitant]
  7. BETASERON [Concomitant]

REACTIONS (3)
  - OEDEMA [None]
  - SWELLING [None]
  - WEIGHT INCREASED [None]
